FAERS Safety Report 9888496 (Version 1)
Quarter: 2014Q1

REPORT INFORMATION
  Report Type: Spontaneous
  Country: US (occurrence: US)
  Receive Date: 20140211
  Receipt Date: 20140211
  Transmission Date: 20141002
  Serious: Yes (Other)
  Sender: FDA-Public Use
  Company Number: US-ALEXION PHARMACEUTICALS INC.-A201400330

PATIENT
  Sex: 0

DRUGS (2)
  1. SOLIRIS 300MG [Suspect]
     Indication: THROMBOTIC MICROANGIOPATHY
     Dosage: 1200 MG, QW
     Route: 042
  2. SOLIRIS 300MG [Suspect]
     Dosage: 900 MG, Q2W
     Route: 042

REACTIONS (2)
  - Dialysis [Unknown]
  - Off label use [Unknown]
